FAERS Safety Report 23959078 (Version 1)
Quarter: 2024Q2

REPORT INFORMATION
  Report Type: Spontaneous
  Country: US (occurrence: US)
  Receive Date: 20240611
  Receipt Date: 20240611
  Transmission Date: 20240716
  Serious: No
  Sender: FDA-Public Use
  Company Number: US-862174955-ML2024-03263

PATIENT
  Sex: Male

DRUGS (4)
  1. DORZOLAMIDE HYDROCHLORIDE AND TIMOLOL MALEATE OPHTHALMIC SOLUTION [Suspect]
     Active Substance: DORZOLAMIDE HYDROCHLORIDE\TIMOLOL MALEATE
     Indication: Glaucoma
     Dosage: STRENGTH: 22.3MG/ML AND 6.8MG/ML
     Route: 047
     Dates: start: 202405
  2. DORZOLAMIDE HYDROCHLORIDE AND TIMOLOL MALEATE OPHTHALMIC SOLUTION [Suspect]
     Active Substance: DORZOLAMIDE HYDROCHLORIDE\TIMOLOL MALEATE
     Dosage: STRENGTH: 22.3MG/ML AND 6.8MG/ML
     Route: 047
     Dates: start: 20240527
  3. LUMIGAN [Concomitant]
     Active Substance: BIMATOPROST
     Indication: Product used for unknown indication
     Dosage: DOSE: ONCE AT NIGHT
  4. Brimonidine Tartrate Optical solution [Concomitant]
     Indication: Product used for unknown indication
     Dosage: DOSE: TWICE A DAY IN BOTH EYES
     Route: 047

REACTIONS (2)
  - Eye irritation [Unknown]
  - Product dose omission issue [Unknown]

NARRATIVE: CASE EVENT DATE: 20240501
